FAERS Safety Report 17495304 (Version 1)
Quarter: 2020Q1

REPORT INFORMATION
  Report Type: Spontaneous
  Country: JP (occurrence: JP)
  Receive Date: 20200304
  Receipt Date: 20200304
  Transmission Date: 20200409
  Serious: Yes (Other)
  Sender: FDA-Public Use
  Company Number: NVSJ2020JP002799

PATIENT
  Sex: Male

DRUGS (1)
  1. VOTRIENT [Suspect]
     Active Substance: PAZOPANIB HYDROCHLORIDE
     Indication: RENAL CELL CARCINOMA
     Dosage: 400 MG
     Route: 048
     Dates: start: 20200116, end: 20200218

REACTIONS (5)
  - Interstitial lung disease [Not Recovered/Not Resolved]
  - Lung opacity [Unknown]
  - Cerebral infarction [Unknown]
  - Cough [Unknown]
  - Performance status decreased [Unknown]

NARRATIVE: CASE EVENT DATE: 20200218
